FAERS Safety Report 7345119-0 (Version None)
Quarter: 2011Q1

REPORT INFORMATION
  Report Type: 
  Country: None (occurrence: None)
  Receive Date: 20110310
  Receipt Date: 20110302
  Transmission Date: 20110831
  Serious: Yes (Hospitalization, Other)
  Sender: FDA-Public Use
  Company Number: DE-ELI_LILLY_AND_COMPANY-DE201101005993

PATIENT
  Age: 68 Year
  Sex: Male
  Weight: 107 kg

DRUGS (7)
  1. BETAPRESSIN [Concomitant]
  2. DELIX [Concomitant]
     Dosage: 2.5 MG, UNK
  3. BYETTA [Suspect]
     Dosage: 10 UG, UNKNOWN
     Route: 058
     Dates: start: 20090710
  4. VALORON N [Concomitant]
  5. NEXIUM-MUPS /01479302/ [Concomitant]
     Dosage: 40 MG, UNK
  6. SIMVASTATIN [Concomitant]
     Dosage: 20 MG, UNK
  7. SIOFOR [Concomitant]
     Dosage: 1000 D/F, UNK

REACTIONS (7)
  - URINARY RETENTION [None]
  - BLADDER TAMPONADE [None]
  - URETERIC OBSTRUCTION [None]
  - BLOOD GLUCOSE INCREASED [None]
  - BLADDER NECK OPERATION [None]
  - URETHROTOMY [None]
  - WEIGHT DECREASED [None]
